FAERS Safety Report 5365685-4 (Version None)
Quarter: 2007Q2

REPORT INFORMATION
  Report Type: 
  Country: None (occurrence: None)
  Receive Date: 20070621
  Receipt Date: 20070608
  Transmission Date: 20071010
  Serious: Yes (Disabling)
  Sender: FDA-Public Use
  Company Number: BE-ELI_LILLY_AND_COMPANY-BE200701005151

PATIENT
  Age: 74 Year
  Sex: Female
  Weight: 60 kg

DRUGS (6)
  1. FORTEO [Suspect]
     Indication: OSTEOPOROSIS
     Dosage: 20 UG, DAILY (1/D)
     Route: 058
     Dates: start: 20060519, end: 20061201
  2. MEDROL [Concomitant]
     Indication: TEMPORAL ARTERITIS
     Dosage: 4 MG, DAILY (1/D)
     Dates: start: 20000101
  3. IMURAN [Concomitant]
     Indication: TEMPORAL ARTERITIS
     Dates: start: 20000101
  4. ASPIRIN [Concomitant]
     Dosage: 100 MG, DAILY (1/D)
  5. STEOVIT D3 [Concomitant]
  6. RYTMONORM /GFR/ [Concomitant]

REACTIONS (1)
  - WEIGHT DECREASED [None]
